FAERS Safety Report 5298280-6 (Version None)
Quarter: 2007Q2

REPORT INFORMATION
  Report Type: 
  Country: None (occurrence: None)
  Receive Date: 20070409
  Receipt Date: 20070402
  Transmission Date: 20071010
  Serious: Yes (Hospitalization, Other)
  Sender: FDA-Public Use
  Company Number: 2007BI001880

PATIENT
  Age: 53 Year
  Sex: Female

DRUGS (4)
  1. AVONEX [Suspect]
     Indication: MULTIPLE SCLEROSIS
     Dosage: 30 UG;QW;IM
     Route: 030
     Dates: start: 20030601, end: 20070107
  2. PREGABALIN [Concomitant]
  3. IBUPROFEN [Concomitant]
  4. SERTRALIN [Concomitant]

REACTIONS (4)
  - BACK PAIN [None]
  - LUNG NEOPLASM [None]
  - METASTASES TO LYMPH NODES [None]
  - PANCREATIC CARCINOMA [None]
